FAERS Safety Report 5053010-8 (Version None)
Quarter: 2006Q3

REPORT INFORMATION
  Report Type: 
  Country: None (occurrence: None)
  Receive Date: 20060712
  Receipt Date: 20060628
  Transmission Date: 20061208
  Serious: Yes (Hospitalization, Other)
  Sender: FDA-Public Use
  Company Number: 2006056922

PATIENT
  Age: 46 Year
  Sex: Female
  Weight: 63.5036 kg

DRUGS (7)
  1. BEXTRA [Suspect]
     Indication: TENDON INJURY
     Dosage: 20 MG (20 MG, 1 IN 1 D)
     Dates: start: 20040614
  2. VIOXX [Suspect]
     Indication: MUSCULOSKELETAL DISORDER
     Dosage: 50 MG (25 MG, 2 IN 1 D)
     Dates: start: 20040611, end: 20040815
  3. ADVIL [Concomitant]
  4. ASPIRIN [Concomitant]
  5. DEMEROL [Concomitant]
  6. MORPHINE [Concomitant]
  7. ACETAMINOPHEN [Concomitant]

REACTIONS (2)
  - CEREBROVASCULAR ACCIDENT [None]
  - PAIN IN EXTREMITY [None]
